FAERS Safety Report 8060318-0 (Version None)
Quarter: 2012Q1

REPORT INFORMATION
  Report Type: 
  Country: None (occurrence: None)
  Receive Date: 20120120
  Receipt Date: 20120117
  Transmission Date: 20120608
  Serious: No
  Sender: FDA-Public Use
  Company Number: US-PFIZER INC-2011272793

PATIENT
  Sex: Female

DRUGS (1)
  1. MECLIZINE HCL [Suspect]
     Indication: MENIERE'S DISEASE
     Dosage: 25 MG, 1 TAB Q 8 HRS
     Route: 048

REACTIONS (1)
  - DRUG INEFFECTIVE [None]
